FAERS Safety Report 12874828 (Version 2)
Quarter: 2016Q4

REPORT INFORMATION
  Report Type: Spontaneous
  Country: IT (occurrence: IT)
  Receive Date: 20161022
  Receipt Date: 20161024
  Transmission Date: 20170207
  Serious: Yes (Other)
  Sender: FDA-Public Use
  Company Number: IT-B.I. PHARMACEUTICALS,INC./RIDGEFIELD-2016-BI-067268

PATIENT
  Sex: Male

DRUGS (1)
  1. PRADAXA [Suspect]
     Active Substance: DABIGATRAN ETEXILATE MESYLATE
     Indication: PRODUCT USED FOR UNKNOWN INDICATION
     Route: 065

REACTIONS (11)
  - Cough [Not Recovered/Not Resolved]
  - Haemoptysis [Unknown]
  - Confusional state [Unknown]
  - Haematoma [Unknown]
  - Diarrhoea [Not Recovered/Not Resolved]
  - Erythema [Unknown]
  - Gastrointestinal motility disorder [Unknown]
  - Oral mucosal erythema [Not Recovered/Not Resolved]
  - Abdominal pain [Unknown]
  - Flatulence [Not Recovered/Not Resolved]
  - Oral disorder [Unknown]
